FAERS Safety Report 13238712 (Version 2)
Quarter: 2017Q1

REPORT INFORMATION
  Report Type: Report from Study
  Country: BR (occurrence: BR)
  Receive Date: 20170216
  Receipt Date: 20170316
  Transmission Date: 20170428
  Serious: Yes (Other)
  Sender: FDA-Public Use
  Company Number: PHHY2017BR022057

PATIENT
  Sex: Female
  Weight: 49 kg

DRUGS (2)
  1. HYDREA [Concomitant]
     Active Substance: HYDROXYUREA
     Indication: SICKLE CELL ANAEMIA
     Route: 065
  2. EXJADE [Suspect]
     Active Substance: DEFERASIROX
     Indication: SICKLE CELL ANAEMIA
     Dosage: 1500 MG, QD (3 DISPERSIBLE TABLETS OF 500 MG ORALLY)
     Route: 048
     Dates: start: 2013

REACTIONS (2)
  - Appendicitis [Recovering/Resolving]
  - Weight decreased [Unknown]
